FAERS Safety Report 8571175-8 (Version None)
Quarter: 2012Q3

REPORT INFORMATION
  Report Type: 
  Country: None (occurrence: None)
  Receive Date: 20120806
  Receipt Date: 20110120
  Transmission Date: 20120928
  Serious: Yes (Hospitalization, Other)
  Sender: FDA-Public Use
  Company Number: US-BAYER-US-2007-017656

PATIENT
  Age: 55 Year
  Sex: Male

DRUGS (13)
  1. BETASERON [Suspect]
     Indication: PROGRESSIVE RELAPSING MULTIPLE SCLEROSIS
     Dosage: 8 MIU, EVERY 2D
     Route: 058
     Dates: start: 20030507, end: 20070701
  2. GABAPENTIN [Concomitant]
  3. ACETAMINOPHEN [Concomitant]
     Indication: PAIN
  4. PLAVIX [Concomitant]
  5. BETASERON [Suspect]
     Dosage: 8 MIU, QOD
     Route: 058
     Dates: start: 20100816
  6. LISINOPRIL [Concomitant]
  7. ASPIRIN [Concomitant]
     Indication: PAIN
     Dosage: 325 MG, QD
  8. CARVEDILOL [Concomitant]
  9. BETASERON [Suspect]
     Dosage: UNK
     Route: 058
     Dates: start: 20080918, end: 20091201
  10. CHLOZOXINE [Concomitant]
  11. DELTA 3 [Concomitant]
     Dosage: 4000 IU, QD
  12. HYDROCHLOROTHIAZDE TAB [Concomitant]
  13. SIMVASTATIN [Concomitant]

REACTIONS (15)
  - GINGIVAL INFECTION [None]
  - CARDIAC DISORDER [None]
  - BRONCHIAL IRRITATION [None]
  - CHILLS [None]
  - CHEST PAIN [None]
  - DEPRESSION [None]
  - TOOTH EXTRACTION [None]
  - TOOTH LOSS [None]
  - PRODUCT QUALITY ISSUE [None]
  - INJECTION SITE PAIN [None]
  - PAIN [None]
  - CONTUSION [None]
  - HEADACHE [None]
  - INJECTION SITE HAEMATOMA [None]
  - CORONARY ARTERY OCCLUSION [None]
